FAERS Safety Report 24025753 (Version 2)
Quarter: 2024Q3

REPORT INFORMATION
  Report Type: Report from Study
  Country: CO (occurrence: CO)
  Receive Date: 20240628
  Receipt Date: 20240710
  Transmission Date: 20241017
  Serious: No
  Sender: ROCHE
  Company Number: CO-ROCHE-3408827

PATIENT
  Age: 30 Year
  Sex: Female
  Weight: 93.0 kg

DRUGS (2)
  1. ALECENSA [Suspect]
     Active Substance: ALECTINIB HYDROCHLORIDE
     Indication: Non-small cell lung cancer
     Dosage: LAST DOSE ON 23/AUG/2023 (MORNING DOSE - 600 MG).
     Route: 048
     Dates: start: 20230624
  2. MORPHINE [Concomitant]
     Active Substance: MORPHINE
     Indication: Pain
     Dosage: SHE ONLY TAKES IT IF SHE REQUIRES IT ACCORDING TO THE LEVEL OF PAIN

REACTIONS (4)
  - Burning sensation [Not Recovered/Not Resolved]
  - Nausea [Recovered/Resolved]
  - Photosensitivity reaction [Recovering/Resolving]
  - Dry skin [Recovering/Resolving]

NARRATIVE: CASE EVENT DATE: 20230624
